FAERS Safety Report 10071396 (Version 1)
Quarter: 2014Q2

REPORT INFORMATION
  Report Type: Spontaneous
  Country: US (occurrence: US)
  Receive Date: 20140410
  Receipt Date: 20140410
  Transmission Date: 20141212
  Serious: Yes (Other)
  Sender: FDA-Public Use
  Company Number: US-PFIZER INC-2014097795

PATIENT
  Age: 69 Year
  Sex: Female
  Weight: 69.39 kg

DRUGS (9)
  1. SOMAVERT [Suspect]
     Indication: ACROMEGALY
     Dosage: 15 MG, MIX AS DIRECTED AND INJECT 15MG SUBCUTANEOUSLY DAILY AS DIRECTED
     Route: 058
  2. SOMAVERT [Suspect]
     Dosage: 10 MG, UNK
     Route: 058
  3. TOPROL XL [Concomitant]
     Dosage: 25 MG, UNK
  4. LASIX [Concomitant]
     Dosage: 40 MG, UNK
  5. CATAPRES-TTS [Concomitant]
     Dosage: DIS 0.1/ 24HR
  6. TRAZODONE [Concomitant]
     Dosage: 50 MG, UNK
  7. DIOVANE [Concomitant]
     Dosage: 40 MG, UNK
  8. TYLENOL [Concomitant]
     Dosage: 500 MG, UNK
  9. POTASSIUM [Concomitant]
     Dosage: 75 MG, UNK

REACTIONS (1)
  - Gastric cancer [Unknown]
